FAERS Safety Report 6792779-9 (Version None)
Quarter: 2010Q2

REPORT INFORMATION
  Report Type: 
  Country: None (occurrence: None)
  Receive Date: 20100624
  Receipt Date: 20081001
  Transmission Date: 20101027
  Serious: Yes (Other)
  Sender: FDA-Public Use
  Company Number: US-PFIZER INC-2008083104

PATIENT
  Sex: Male

DRUGS (1)
  1. GEODON [Suspect]
     Indication: BIPOLAR DISORDER
     Dosage: TDD:140 MG
     Dates: start: 20080929

REACTIONS (2)
  - DYSTONIA [None]
  - NERVOUSNESS [None]
